FAERS Safety Report 9336928 (Version 6)
Quarter: 2014Q1

REPORT INFORMATION
  Report Type: Report from Study
  Country: BG (occurrence: BG)
  Receive Date: 20130607
  Receipt Date: 20140326
  Transmission Date: 20141002
  Serious: Yes (Death, Life-Threatening, Hospitalization)
  Sender: FDA-Public Use
  Company Number: BG-PFIZER INC-2013143541

PATIENT
  Age: 64 Year
  Sex: Female
  Weight: 76 kg

DRUGS (10)
  1. TOFACITINIB CITRATE [Suspect]
     Indication: PSORIASIS
     Dosage: 10 MG, 2X/DAY
     Route: 048
     Dates: start: 20120103, end: 20120325
  2. TOFACITINIB CITRATE [Suspect]
     Dosage: 5 MG, 2X/DAY
     Dates: start: 20120326, end: 20120617
  3. TOFACITINIB CITRATE [Suspect]
     Dosage: 5 MG, 2X/DAY
     Dates: start: 20120618, end: 20120911
  4. TOFACITINIB CITRATE [Suspect]
     Dosage: 5 MG, 2X/DAY
     Dates: start: 20120912, end: 20121204
  5. TOFACITINIB CITRATE [Suspect]
     Dosage: 10 MG, 2X/DAY
     Dates: start: 20121205, end: 20130303
  6. TOFACITINIB CITRATE [Suspect]
     Dosage: 10 MG, 2X/DAY
     Dates: start: 20130304, end: 20130506
  7. INSULIN NOVO [Concomitant]
     Indication: DIABETES MELLITUS
     Dosage: 26+22 UI, TWO TIMES DAILY
     Route: 058
     Dates: start: 200511
  8. ENAP H 20/12 [Concomitant]
     Indication: HYPERTENSION
     Dosage: 20 MG, 2X/DAY
     Route: 048
     Dates: start: 200511
  9. LOPRESSOR [Concomitant]
     Indication: HYPERTENSION
     Dosage: 100 MG, 1X/DAY
     Route: 048
     Dates: start: 1999
  10. NIFEDIPINE [Concomitant]
     Indication: HYPERTENSION
     Dosage: 20 MG, 2X/DAY
     Route: 048
     Dates: start: 1999

REACTIONS (1)
  - Endometrial cancer [Fatal]
